FAERS Safety Report 19726178 (Version 1)
Quarter: 2021Q3

REPORT INFORMATION
  Report Type: Spontaneous
  Country: VN (occurrence: VN)
  Receive Date: 20210820
  Receipt Date: 20210820
  Transmission Date: 20211014
  Serious: Yes (Hospitalization)
  Sender: FDA-Public Use
  Company Number: VN-MACLEODS PHARMACEUTICALS US LTD-MAC2021032343

PATIENT

DRUGS (2)
  1. PAROXETINE. [Concomitant]
     Active Substance: PAROXETINE
     Indication: INSOMNIA
     Dosage: 10 MILLIGRAM
     Route: 065
  2. OLANZAPINE 2.5 MG [Suspect]
     Active Substance: OLANZAPINE
     Indication: INSOMNIA
     Dosage: 2.5 MILLIGRAM, QD
     Route: 065

REACTIONS (5)
  - Extradural haematoma [Recovered/Resolved]
  - Fall [Recovered/Resolved]
  - Syncope [Recovered/Resolved]
  - Pulmonary embolism [Recovered/Resolved]
  - Pulmonary artery occlusion [Recovered/Resolved]
